FAERS Safety Report 20621819 (Version 1)
Quarter: 2022Q1

REPORT INFORMATION
  Report Type: Spontaneous
  Country: BR (occurrence: BR)
  Receive Date: 20220322
  Receipt Date: 20220322
  Transmission Date: 20220424
  Serious: Yes (Hospitalization, Other)
  Sender: FDA-Public Use
  Company Number: BR-NOVARTISPH-NVSC2021BR285841

PATIENT
  Age: 49 Year
  Sex: Female
  Weight: 74 kg

DRUGS (1)
  1. ALLOPURINOL [Suspect]
     Active Substance: ALLOPURINOL
     Indication: Blood uric acid decreased
     Dosage: UNK UNK, QD
     Route: 048
     Dates: start: 20211110, end: 20211202

REACTIONS (8)
  - Burning sensation [Unknown]
  - Stevens-Johnson syndrome [Unknown]
  - Pain in extremity [Unknown]
  - Erythema [Unknown]
  - Oral pain [Unknown]
  - Oropharyngeal pain [Unknown]
  - Paraesthesia [Unknown]
  - Eye disorder [Unknown]

NARRATIVE: CASE EVENT DATE: 20211201
